FAERS Safety Report 18245503 (Version 1)
Quarter: 2020Q3

REPORT INFORMATION
  Report Type: Spontaneous
  Country: US (occurrence: US)
  Receive Date: 20200909
  Receipt Date: 20200909
  Transmission Date: 20201103
  Serious: No
  Sender: FDA-Public Use
  Company Number: None

PATIENT
  Age: 39 Year
  Sex: Female
  Weight: 95.4 kg

DRUGS (3)
  1. CENTRUM WOMEN^S MULTIVITAMIN [Concomitant]
  2. MAGNESIUM SUPPLEMENT [Concomitant]
  3. DIFLUCAN [Suspect]
     Active Substance: FLUCONAZOLE
     Indication: FUNGAL INFECTION
     Route: 048
     Dates: start: 20200720, end: 20200720

REACTIONS (10)
  - Oral mucosal eruption [None]
  - Rash erythematous [None]
  - Cheilitis [None]
  - Lip exfoliation [None]
  - Lip discolouration [None]
  - Skin exfoliation [None]
  - Lip pruritus [None]
  - Lip swelling [None]
  - Dysgeusia [None]
  - Lip blister [None]

NARRATIVE: CASE EVENT DATE: 20200720
